FAERS Safety Report 10362551 (Version 1)
Quarter: 2014Q3

REPORT INFORMATION
  Report Type: Report from Study
  Country: US (occurrence: US)
  Receive Date: 20140805
  Receipt Date: 20140805
  Transmission Date: 20150326
  Serious: Yes (Death, Life-Threatening, Hospitalization)
  Sender: FDA-Public Use
  Company Number: US-US-EMD SERONO, INC.-7310751

PATIENT
  Age: 58 Year
  Sex: Male

DRUGS (2)
  1. REBIF [Suspect]
     Active Substance: INTERFERON BETA-1A
     Route: 058
  2. REBIF [Suspect]
     Active Substance: INTERFERON BETA-1A
     Indication: PRODUCT USED FOR UNKNOWN INDICATION
     Route: 058
     Dates: start: 20050831

REACTIONS (4)
  - Cardiac arrest [Unknown]
  - Cerebrovascular accident [Unknown]
  - Thrombotic thrombocytopenic purpura [Fatal]
  - Liver function test abnormal [Unknown]

NARRATIVE: CASE EVENT DATE: 201311
